FAERS Safety Report 5730573-8 (Version None)
Quarter: 2008Q2

REPORT INFORMATION
  Report Type: 
  Country: None (occurrence: None)
  Receive Date: 20080507
  Receipt Date: 20080506
  Transmission Date: 20081010
  Serious: Yes (Hospitalization)
  Sender: FDA-Public Use
  Company Number: A0719386A

PATIENT
  Age: 13 Year
  Sex: Female

DRUGS (4)
  1. LAMICTAL [Suspect]
     Indication: BIPOLAR DISORDER
     Dosage: 160MG PER DAY
     Route: 048
     Dates: start: 20070701
  2. NAMENDA [Suspect]
     Indication: ATTENTION DEFICIT/HYPERACTIVITY DISORDER
     Dosage: 7.5MG PER DAY
     Dates: start: 20070101
  3. ABILIFY [Concomitant]
  4. PAINEX [Concomitant]

REACTIONS (2)
  - AGITATION [None]
  - ANXIETY [None]
